FAERS Safety Report 9706664 (Version 1)
Quarter: 2013Q4

REPORT INFORMATION
  Report Type: Report from Study
  Country: CL (occurrence: CL)
  Receive Date: 20131125
  Receipt Date: 20131125
  Transmission Date: 20140711
  Serious: Yes (Disabling)
  Sender: FDA-Public Use
  Company Number: CL-ROCHE-1308093

PATIENT
  Age: 70 Year
  Sex: Female

DRUGS (2)
  1. PEGASYS [Suspect]
     Indication: HEPATITIS C
     Dosage: ONGOING
     Route: 058
     Dates: start: 20131028
  2. RIBAVIRIN [Suspect]
     Indication: HEPATITIS C
     Dosage: ONGOING
     Route: 048
     Dates: start: 20131028

REACTIONS (2)
  - Muscular weakness [Not Recovered/Not Resolved]
  - Depressed mood [Not Recovered/Not Resolved]
